FAERS Safety Report 12292685 (Version 1)
Quarter: 2016Q2

REPORT INFORMATION
  Report Type: Report from Study
  Country: US (occurrence: US)
  Receive Date: 20160421
  Receipt Date: 20160421
  Transmission Date: 20160815
  Serious: No
  Sender: FDA-Public Use
  Company Number: US-AMGEN-USASL2016029199

PATIENT
  Age: 65 Year
  Sex: Female

DRUGS (1)
  1. REPATHA [Suspect]
     Active Substance: EVOLOCUMAB
     Indication: BLOOD CHOLESTEROL INCREASED
     Dosage: UNK
     Route: 065
     Dates: start: 201510

REACTIONS (5)
  - Diarrhoea [Unknown]
  - Constipation [Unknown]
  - Abdominal pain [Not Recovered/Not Resolved]
  - Blood cholesterol increased [Unknown]
  - Flatulence [Not Recovered/Not Resolved]
